FAERS Safety Report 19567019 (Version 3)
Quarter: 2022Q2

REPORT INFORMATION
  Report Type: Report from Study
  Country: US (occurrence: US)
  Receive Date: 20210714
  Receipt Date: 20220606
  Transmission Date: 20220721
  Serious: No
  Sender: FDA-Public Use
  Company Number: US-SHIRE-US201602736

PATIENT
  Age: 28 Year
  Sex: Female

DRUGS (18)
  1. VELAGLUCERASE ALFA [Suspect]
     Active Substance: VELAGLUCERASE ALFA
     Indication: Gaucher^s disease
     Dosage: 30 INTERNATIONAL UNIT/KILOGRAM, Q2WEEKS
     Route: 041
     Dates: start: 201202
  2. ALBUTEROL [Concomitant]
     Active Substance: ALBUTEROL
     Indication: Asthma
     Dosage: 90 MICROGRAM
     Route: 055
     Dates: start: 200503, end: 20170405
  3. MEDROXYPROGESTERONE [Concomitant]
     Active Substance: MEDROXYPROGESTERONE
     Indication: Contraception
     Dosage: UNK
     Route: 030
     Dates: start: 201201
  4. ERGOCALCIFEROL [Concomitant]
     Active Substance: ERGOCALCIFEROL
     Dosage: UNK UNK, 1/WEEK
     Route: 048
     Dates: start: 201201, end: 20160506
  5. CALCIUM CARBONATE\VITAMIN D [Concomitant]
     Active Substance: CALCIUM CARBONATE\VITAMIN D
     Dosage: UNK UNK, BID
     Route: 048
     Dates: start: 201201, end: 20170807
  6. HYDROCODONE BITARTRATE AND ACETAMINOPHEN [Concomitant]
     Active Substance: ACETAMINOPHEN\HYDROCODONE BITARTRATE
     Indication: Pain
     Dosage: UNK
     Route: 048
     Dates: start: 201206, end: 201307
  7. BECLOMETHASONE DIPROPIONATE [Concomitant]
     Active Substance: BECLOMETHASONE DIPROPIONATE
     Indication: Asthma
     Dosage: UNK UNK, QD
     Route: 050
     Dates: start: 201207
  8. DIPHENHYDRAMINE [Concomitant]
     Active Substance: DIPHENHYDRAMINE
     Dosage: 25 MILLIGRAM
     Route: 048
     Dates: start: 20121102
  9. NAPROXEN SODIUM [Concomitant]
     Active Substance: NAPROXEN SODIUM
     Indication: Pain
     Dosage: UNK
     Route: 048
     Dates: start: 201301, end: 201309
  10. MONTELUKAST [Concomitant]
     Active Substance: MONTELUKAST SODIUM
     Indication: Asthma
     Dosage: UNK
     Route: 048
     Dates: start: 201305, end: 20140424
  11. FLUTICASONE [Concomitant]
     Active Substance: FLUTICASONE
     Indication: Asthma
     Dosage: UNK
     Route: 050
     Dates: start: 201306
  12. CEPHALEXIN [Concomitant]
     Active Substance: CEPHALEXIN
     Indication: Cellulitis
     Dosage: UNK UNK, QID
     Route: 048
     Dates: start: 20131010, end: 20131017
  13. CEPHALEXIN [Concomitant]
     Active Substance: CEPHALEXIN
     Dosage: 500 MILLIGRAM, QID
     Route: 048
     Dates: start: 20170717, end: 20170727
  14. CLINDAMYCIN [Concomitant]
     Active Substance: CLINDAMYCIN
     Indication: Cellulitis
     Dosage: UNK UNK, TID
     Route: 048
     Dates: start: 20131010, end: 20131017
  15. OMEPRAZOLE [Concomitant]
     Active Substance: OMEPRAZOLE
     Indication: Gastrooesophageal reflux disease
     Dosage: UNK UNK, QD
     Route: 048
     Dates: start: 201404, end: 20160509
  16. ONDANSETRON [Concomitant]
     Active Substance: ONDANSETRON
     Indication: Nausea
     Dosage: UNK
     Route: 048
     Dates: start: 201404, end: 20160509
  17. EPINEPHRINE [Concomitant]
     Active Substance: EPINEPHRINE
     Indication: Anaphylactic reaction
     Dosage: UNK
     Route: 030
     Dates: start: 201404
  18. IBUPROFEN [Concomitant]
     Active Substance: IBUPROFEN
     Indication: Pain in extremity
     Dosage: 800 MILLIGRAM
     Route: 048
     Dates: start: 20170807

REACTIONS (1)
  - Non-cardiac chest pain [Recovered/Resolved]

NARRATIVE: CASE EVENT DATE: 20160304
